FAERS Safety Report 16762212 (Version 1)
Quarter: 2019Q3

REPORT INFORMATION
  Report Type: Spontaneous
  Country: GB (occurrence: GB)
  Receive Date: 20190831
  Receipt Date: 20190831
  Transmission Date: 20191005
  Serious: Yes (Hospitalization, Other)
  Sender: FDA-Public Use
  Company Number: GB-AUROBINDO-AUR-APL-2019-055328

PATIENT

DRUGS (4)
  1. ZOLEDRONIC ACID SOLUTION FOR INFUSION [Suspect]
     Active Substance: ZOLEDRONIC ACID
     Indication: SPINAL COMPRESSION FRACTURE
     Dosage: UNK, 1 TOTAL, RECEIVED A HALF DOSE OF ZOLEDRONATE (0.025 MG/KG)
     Route: 065
  2. VITAMIN D [Concomitant]
     Active Substance: VITAMIN D NOS
     Indication: PROPHYLAXIS
     Dosage: UNK, VITAMIN D SUPPLEMENTATION
     Route: 065
  3. DEFLAZACORT [Concomitant]
     Active Substance: DEFLAZACORT
     Indication: DUCHENNE MUSCULAR DYSTROPHY
     Dosage: 18 MILLIGRAM, ONCE A DAY
     Route: 065
  4. CALCIUM [Concomitant]
     Active Substance: CALCIUM
     Indication: PROPHYLAXIS
     Dosage: UNK, CALCIUM SUPPLEMENTATION AS PER HOSPITAL PROTOCOL
     Route: 065

REACTIONS (5)
  - Rhabdomyolysis [Recovered/Resolved]
  - Inflammation [Recovered/Resolved]
  - Hypophosphataemia [Recovered/Resolved]
  - Myoglobinuria [Recovered/Resolved]
  - Hypocalcaemia [Recovered/Resolved]
